FAERS Safety Report 14582715 (Version 1)
Quarter: 2018Q1

REPORT INFORMATION
  Report Type: Spontaneous
  Country: US (occurrence: US)
  Receive Date: 20180228
  Receipt Date: 20180228
  Transmission Date: 20180509
  Serious: No
  Sender: FDA-Public Use
  Company Number: US-MYLANLABS-2018M1009006

PATIENT
  Age: 86 Year
  Sex: Female

DRUGS (4)
  1. METOLAZONE. [Suspect]
     Active Substance: METOLAZONE
     Indication: PRODUCT USED FOR UNKNOWN INDICATION
     Dosage: UNK
     Route: 048
  2. NORTHERA [Interacting]
     Active Substance: DROXIDOPA
     Indication: CARDIAC DISORDER
     Dosage: 100 MG, TID
     Route: 048
     Dates: start: 20170810
  3. NORTHERA [Interacting]
     Active Substance: DROXIDOPA
     Dosage: 200 MG, TID
     Route: 048
     Dates: start: 20170910
  4. LASIX [Suspect]
     Active Substance: FUROSEMIDE
     Indication: PRODUCT USED FOR UNKNOWN INDICATION

REACTIONS (2)
  - Dizziness [Not Recovered/Not Resolved]
  - Drug interaction [Unknown]

NARRATIVE: CASE EVENT DATE: 20170828
